FAERS Safety Report 21643716 (Version 1)
Quarter: 2022Q4

REPORT INFORMATION
  Report Type: Spontaneous
  Country: US (occurrence: US)
  Receive Date: 20221125
  Receipt Date: 20221125
  Transmission Date: 20230113
  Serious: No
  Sender: FDA-Public Use
  Company Number: US-ORGANON-O2211USA001999

PATIENT
  Sex: Female

DRUGS (2)
  1. NEXPLANON [Suspect]
     Active Substance: ETONOGESTREL
     Dosage: 1 IMPLANT
     Route: 059
  2. NEXPLANON [Suspect]
     Active Substance: ETONOGESTREL
     Dosage: 1 IMPLANT
     Route: 059

REACTIONS (6)
  - Complication associated with device [Not Recovered/Not Resolved]
  - Device placement issue [Recovered/Resolved]
  - No adverse event [Unknown]
  - Device use issue [Recovered/Resolved]
  - Overdose [Recovered/Resolved]
  - Incorrect product administration duration [Not Recovered/Not Resolved]
